FAERS Safety Report 6813528-1 (Version None)
Quarter: 2010Q3

REPORT INFORMATION
  Report Type: 
  Country: None (occurrence: None)
  Receive Date: 20100701
  Receipt Date: 20100626
  Transmission Date: 20110219
  Serious: Yes (Other)
  Sender: FDA-Public Use
  Company Number: US-TEVA-234974USA

PATIENT
  Sex: Female

DRUGS (3)
  1. CLARAVIS [Suspect]
     Route: 048
     Dates: start: 20100304
  2. LEVONORGESTREL [Concomitant]
     Indication: POST COITAL CONTRACEPTION
  3. ORAL CONTRACEPTIVE NOS [Concomitant]
     Indication: CONTRACEPTION
     Route: 048

REACTIONS (1)
  - UNINTENDED PREGNANCY [None]
